FAERS Safety Report 4918132-8 (Version None)
Quarter: 2006Q1

REPORT INFORMATION
  Report Type: 
  Country: None (occurrence: None)
  Receive Date: 20060221
  Receipt Date: 20051214
  Transmission Date: 20060701
  Serious: Yes (Death, Hospitalization)
  Sender: FDA-Public Use
  Company Number: US-MERCK-0512USA02382

PATIENT
  Age: 45 Year
  Sex: Female
  Weight: 61 kg

DRUGS (1)
  1. VIOXX [Suspect]
     Indication: ARTHRALGIA
     Route: 048
     Dates: start: 20011218, end: 20020103

REACTIONS (1)
  - ACUTE MYOCARDIAL INFARCTION [None]
